FAERS Safety Report 23192919 (Version 4)
Quarter: 2023Q4

REPORT INFORMATION
  Report Type: Other
  Country: US (occurrence: US)
  Receive Date: 20231116
  Receipt Date: 20231225
  Transmission Date: 20240109
  Serious: Yes (Other)
  Sender: FDA-Public Use
  Company Number: US-TRAVERE-2023TVT00691

PATIENT
  Age: 59 Year
  Sex: Male

DRUGS (6)
  1. FILSPARI [Suspect]
     Active Substance: SPARSENTAN
     Indication: IgA nephropathy
     Dosage: 200 MG
     Route: 048
     Dates: start: 20231013
  2. FILSPARI [Suspect]
     Active Substance: SPARSENTAN
     Dosage: 400 MG
     Route: 048
  3. PRAVASTATIN SODIUM [Concomitant]
     Active Substance: PRAVASTATIN SODIUM
  4. FARXIGA [Concomitant]
     Active Substance: DAPAGLIFLOZIN PROPANEDIOL
  5. MELATONIN [Concomitant]
     Active Substance: MELATONIN
  6. ELIQUIS [Concomitant]
     Active Substance: APIXABAN

REACTIONS (3)
  - Shoulder deformity [Unknown]
  - Drug ineffective [Unknown]
  - Hepatic enzyme increased [Unknown]

NARRATIVE: CASE EVENT DATE: 20231101
